FAERS Safety Report 4488199-2 (Version None)
Quarter: 2004Q4

REPORT INFORMATION
  Report Type: 
  Country: None (occurrence: None)
  Receive Date: 20041026
  Receipt Date: 20041018
  Transmission Date: 20050328
  Serious: Yes (Hospitalization)
  Sender: FDA-Public Use
  Company Number: SP00354

PATIENT
  Age: 57 Year
  Sex: Male

DRUGS (7)
  1. XIAFAXAN(TABLETS) [Suspect]
     Indication: CROHN'S DISEASE
     Dosage: 600 MG/DAILY, ORAL
     Route: 048
     Dates: start: 20040915
  2. MERCAPTOPURINE [Concomitant]
  3. PREDNISONE [Concomitant]
  4. FLAGYL [Concomitant]
  5. LIPITOR [Concomitant]
  6. CARDURA [Concomitant]
  7. UNKNOWN ANTIBIOTIC [Concomitant]

REACTIONS (3)
  - BLOOD PRESSURE DECREASED [None]
  - PLEURAL EFFUSION [None]
  - RECTAL HAEMORRHAGE [None]
